FAERS Safety Report 19599046 (Version 1)
Quarter: 2021Q3

REPORT INFORMATION
  Report Type: Spontaneous
  Country: US (occurrence: US)
  Receive Date: 20210723
  Receipt Date: 20210723
  Transmission Date: 20211014
  Serious: No
  Sender: FDA-Public Use
  Company Number: None

PATIENT
  Age: 34 Year
  Sex: Female
  Weight: 83.25 kg

DRUGS (7)
  1. BANANA BOAT SIMPLY PROTECT KIDS MINERAL BASED SUNSCREEN BROAD SPECTRUM SPF 50 [Suspect]
     Active Substance: TITANIUM DIOXIDE\ZINC OXIDE
     Indication: PROPHYLAXIS AGAINST SOLAR RADIATION
  2. MULTIVITAMIN [Concomitant]
     Active Substance: VITAMINS
  3. KETOTIFEN FUMARATE EYE DROPS [Concomitant]
  4. PAROXETINE. [Concomitant]
     Active Substance: PAROXETINE
  5. CARBAMAZEPINE. [Concomitant]
     Active Substance: CARBAMAZEPINE
  6. GLUCOSAMINE CHONDROITIN [Concomitant]
     Active Substance: CHONDROITIN SULFATE (BOVINE)\GLUCOSAMINE HYDROCHLORIDE
  7. MAGNESIUM SUPPLEMENT [Concomitant]
     Active Substance: MAGNESIUM

REACTIONS (2)
  - Drug ineffective [None]
  - Burns second degree [None]

NARRATIVE: CASE EVENT DATE: 20210712
